FAERS Safety Report 12535001 (Version 1)
Quarter: 2016Q3

REPORT INFORMATION
  Report Type: Spontaneous
  Country: US (occurrence: US)
  Receive Date: 20160707
  Receipt Date: 20160707
  Transmission Date: 20161109
  Serious: Yes (Death)
  Sender: FDA-Public Use
  Company Number: US-ROCHE-1789943

PATIENT
  Age: 63 Year
  Sex: Male
  Weight: 88.08 kg

DRUGS (1)
  1. AVASTIN [Suspect]
     Active Substance: BEVACIZUMAB
     Indication: BRAIN NEOPLASM MALIGNANT
     Dosage: STRENGTH: 400 MG/16ML AND 100 MG/4 ML
     Route: 042
     Dates: start: 20160527

REACTIONS (1)
  - Death [Fatal]

NARRATIVE: CASE EVENT DATE: 20160704
